FAERS Safety Report 4398845-X (Version None)
Quarter: 2004Q3

REPORT INFORMATION
  Report Type: 
  Country: None (occurrence: None)
  Receive Date: 20040712
  Receipt Date: 20040628
  Transmission Date: 20050211
  Serious: Yes (Death)
  Sender: FDA-Public Use
  Company Number: US-JNJFOC-20040300045

PATIENT
  Age: 64 Year
  Sex: Male
  Weight: 68.0396 kg

DRUGS (8)
  1. RISPERDAL [Suspect]
     Indication: SCHIZOPHRENIA
     Dosage: 2 MG, 2 IN 1 DAY, ORAL; SEE IMAGE
     Route: 048
     Dates: start: 20010501, end: 20010814
  2. RISPERDAL [Suspect]
     Indication: SCHIZOPHRENIA
     Dosage: 2 MG, 2 IN 1 DAY, ORAL; SEE IMAGE
     Route: 048
     Dates: start: 20011001, end: 20011004
  3. RISPERDAL [Suspect]
     Indication: SCHIZOPHRENIA
     Dosage: 2 MG, 2 IN 1 DAY, ORAL; SEE IMAGE
     Route: 048
     Dates: start: 20010814
  4. RISPERDAL [Suspect]
     Indication: SCHIZOPHRENIA
     Dosage: 2 MG, 2 IN 1 DAY, ORAL; SEE IMAGE
     Route: 048
     Dates: start: 20010919
  5. HALDOL [Suspect]
     Dosage: 75 MG, 1 IN 4 WEEK, INTRA-MUSCULAR
     Route: 030
     Dates: start: 20011011, end: 20041115
  6. HALDOL [Suspect]
     Indication: DRUG USE FOR UNKNOWN INDICATION
     Dosage: 5 MG, 2 IN 1 DAY, ORAL; SEE IMAGE
     Route: 048
     Dates: start: 20011011, end: 20011115
  7. HALDOL [Suspect]
     Indication: DRUG USE FOR UNKNOWN INDICATION
     Dosage: 5 MG, 2 IN 1 DAY, ORAL; SEE IMAGE
     Route: 048
     Dates: start: 20011115, end: 20011209
  8. BENZTROPINE MESYLATE [Concomitant]

REACTIONS (37)
  - ACQUIRED PYLORIC STENOSIS [None]
  - BRAIN OEDEMA [None]
  - CATATONIA [None]
  - COGWHEEL RIGIDITY [None]
  - COMA [None]
  - DEMENTIA [None]
  - DROOLING [None]
  - ELECTROCARDIOGRAM T WAVE ABNORMAL [None]
  - ELECTROENCEPHALOGRAM ABNORMAL [None]
  - GASTROOESOPHAGEAL REFLUX DISEASE [None]
  - HALLUCINATION [None]
  - HYPOXIA [None]
  - IMMOBILE [None]
  - INCONTINENCE [None]
  - ISCHAEMIA [None]
  - MALNUTRITION [None]
  - MUSCLE RIGIDITY [None]
  - MUSCULOSKELETAL STIFFNESS [None]
  - NERVOUS SYSTEM DISORDER [None]
  - NEUROLEPTIC MALIGNANT SYNDROME [None]
  - OCCULT BLOOD POSITIVE [None]
  - PARKINSON'S DISEASE [None]
  - PITUITARY TUMOUR BENIGN [None]
  - PNEUMONIA ASPIRATION [None]
  - POSTURE ABNORMAL [None]
  - PSEUDOMONAS INFECTION [None]
  - PSYCHOMOTOR RETARDATION [None]
  - PYREXIA [None]
  - RATHKE'S CLEFT CYST [None]
  - SCHIZOPHRENIA [None]
  - SINUS ARRHYTHMIA [None]
  - SLUGGISHNESS [None]
  - STARING [None]
  - THERAPY NON-RESPONDER [None]
  - TREATMENT NONCOMPLIANCE [None]
  - TREMOR [None]
  - URINARY TRACT INFECTION [None]
